FAERS Safety Report 11891265 (Version 1)
Quarter: 2016Q1

REPORT INFORMATION
  Report Type: Spontaneous
  Country: US (occurrence: None)
  Receive Date: 20160105
  Receipt Date: 20160105
  Transmission Date: 20160526
  Serious: No
  Sender: FDA-Public Use
  Company Number: None

PATIENT

DRUGS (2)
  1. AMOXICILLIN AND CLAVULANTE POTASSIUM (AMOXICILLIN-CLAVULANIC ACID) [Suspect]
     Active Substance: AMOXICILLIN\CLAVULANATE POTASSIUM
  2. AMOXICILLIN (AMOXICILLIN) [Suspect]
     Active Substance: AMOXICILLIN

REACTIONS (3)
  - Transcription medication error [None]
  - Drug dispensing error [None]
  - No therapeutic response [None]

NARRATIVE: CASE EVENT DATE: 2014
